FAERS Safety Report 21070982 (Version 1)
Quarter: 2022Q3

REPORT INFORMATION
  Report Type: Report from Study
  Country: US (occurrence: US)
  Receive Date: 20220712
  Receipt Date: 20220712
  Transmission Date: 20221027
  Serious: Yes (Other)
  Sender: FDA-Public Use
  Company Number: US-BRISTOL-MYERS SQUIBB COMPANY-2022-065349

PATIENT
  Age: 63 Year
  Sex: Female
  Weight: 86.182 kg

DRUGS (16)
  1. POMALYST [Suspect]
     Active Substance: POMALIDOMIDE
     Indication: Plasma cell myeloma
     Dosage: 5 DAYS ON 2 DAYS OFF
     Route: 048
     Dates: start: 20191129
  2. POMALYST [Suspect]
     Active Substance: POMALIDOMIDE
     Indication: Plasma cell myeloma refractory
  3. AMOXICILLIN [Concomitant]
     Active Substance: AMOXICILLIN
  4. FOLBIC [Concomitant]
     Active Substance: CYANOCOBALAMIN\FOLIC ACID\PYRIDOXINE
  5. SOLU-MEDROL [Concomitant]
     Active Substance: METHYLPREDNISOLONE SODIUM SUCCINATE
  6. OMEGA-3 FATTY ACIDS [Concomitant]
     Active Substance: OMEGA-3 FATTY ACIDS
  7. DARZALEX [Concomitant]
     Active Substance: DARATUMUMAB
  8. MAGNESIUM [MAGNESIUM HYDROXIDE] [Concomitant]
  9. ASPIRIN [Concomitant]
     Active Substance: ASPIRIN
  10. VITAMIN D3 [Concomitant]
     Active Substance: CHOLECALCIFEROL
  11. HERBALS\TURMERIC [Concomitant]
     Active Substance: HERBALS\TURMERIC
  12. ACYCLOVIR [Concomitant]
     Active Substance: ACYCLOVIR
  13. CALCIUM [Concomitant]
     Active Substance: CALCIUM
  14. FOLIC ACID [Concomitant]
     Active Substance: FOLIC ACID
  15. VITAMIN B6 [Concomitant]
     Active Substance: PYRIDOXINE HYDROCHLORIDE
  16. VITAMIN B12 [Concomitant]
     Active Substance: CYANOCOBALAMIN

REACTIONS (3)
  - Off label use [Unknown]
  - White blood cell count decreased [Unknown]
  - Oral disorder [Unknown]

NARRATIVE: CASE EVENT DATE: 20220601
